FAERS Safety Report 6250090-9 (Version None)
Quarter: 2009Q2

REPORT INFORMATION
  Report Type: 
  Country: None (occurrence: None)
  Receive Date: 20090625
  Receipt Date: 20090616
  Transmission Date: 20091009
  Serious: Yes (Other)
  Sender: FDA-Public Use
  Company Number: GXKR2009GB06991

PATIENT
  Sex: Female

DRUGS (9)
  1. METFORMIN HCL [Suspect]
     Indication: DIABETES MELLITUS
     Dosage: ORAL
     Route: 048
  2. RITUXIMAB (RITUXIMAB) [Suspect]
     Indication: MYELITIS TRANSVERSE
     Dosage: INTRAVENOUS
     Route: 042
  3. ALENDRONIC ACID (ALENDRONIC ACID) [Concomitant]
  4. AMITRIPTYLINE HYDROCHLORIDE [Concomitant]
  5. CALCICHEW D3 (CALCIUM CARBONATE, COLECALCIFEROL) [Concomitant]
  6. GABAPENTIN [Concomitant]
  7. OMEPRAZOLE [Concomitant]
  8. ACETAMINOPHEN [Concomitant]
  9. SOLIFENACIN SUCCINATE (SOLIFENACIN SUCCINATE) [Concomitant]

REACTIONS (7)
  - ABDOMINAL SEPSIS [None]
  - C-REACTIVE PROTEIN INCREASED [None]
  - LACTIC ACIDOSIS [None]
  - LETHARGY [None]
  - MALAISE [None]
  - PNEUMONIA [None]
  - WHITE BLOOD CELL COUNT INCREASED [None]
